FAERS Safety Report 25871257 (Version 1)
Quarter: 2025Q4

REPORT INFORMATION
  Report Type: Spontaneous
  Country: US (occurrence: US)
  Receive Date: 20251001
  Receipt Date: 20251001
  Transmission Date: 20260118
  Serious: No
  Sender: RECKITT BENCKISER
  Company Number: US-INDIVIOR US-INDV-159734-2025

PATIENT
  Sex: Female

DRUGS (2)
  1. SUBOXONE [Suspect]
     Active Substance: BUPRENORPHINE HYDROCHLORIDE\NALOXONE HYDROCHLORIDE
     Indication: Product used for unknown indication
     Dosage: 2 MILLIGRAM, (TAKING HALF FROM THE 4 MG FILM), QD PRIOR TO SWITCHING TO 2 MG FILMS
     Route: 065
  2. SUBOXONE [Suspect]
     Active Substance: BUPRENORPHINE HYDROCHLORIDE\NALOXONE HYDROCHLORIDE
     Dosage: 2 MILLIGRAM, (TAKING HALF FROM THE 4 MG FILM), QD, AFTER SWITCHING TO 2 MG FILMS
     Route: 065

REACTIONS (2)
  - Euphoric mood [Not Recovered/Not Resolved]
  - Wrong technique in product usage process [Unknown]
